FAERS Safety Report 14604635 (Version 2)
Quarter: 2018Q1

REPORT INFORMATION
  Report Type: Spontaneous
  Country: DK (occurrence: DK)
  Receive Date: 20180306
  Receipt Date: 20180312
  Transmission Date: 20180509
  Serious: Yes (Other)
  Sender: FDA-Public Use
  Company Number: DK-GILEAD-2018-0323779

PATIENT
  Age: 44 Year
  Sex: Male
  Weight: 75 kg

DRUGS (3)
  1. TIVICAY [Interacting]
     Active Substance: DOLUTEGRAVIR SODIUM
     Indication: HIV INFECTION
     Dosage: STYRKE: 50 MG
     Route: 048
     Dates: start: 20140909
  2. SOOLANTRA [Interacting]
     Active Substance: IVERMECTIN
     Indication: ROSACEA
     Dosage: 10 MG/KG, UNK
     Route: 003
  3. DESCOVY [Suspect]
     Active Substance: EMTRICITABINE\TENOFOVIR ALAFENAMIDE FUMARATE
     Indication: HIV INFECTION
     Dosage: STYRKE: 200 MG + 25 MG.
     Route: 048
     Dates: start: 20161010

REACTIONS (3)
  - Drug interaction [Unknown]
  - Pharyngeal oedema [Unknown]
  - Blood HIV RNA increased [Unknown]

NARRATIVE: CASE EVENT DATE: 201711
